FAERS Safety Report 6595639-1 (Version None)
Quarter: 2010Q1

REPORT INFORMATION
  Report Type: 
  Country: None (occurrence: None)
  Receive Date: 20100222
  Receipt Date: 20100222
  Transmission Date: 20100710
  Serious: Yes (Other)
  Sender: FDA-Public Use
  Company Number: None

PATIENT
  Age: 68 Year
  Sex: Male
  Weight: 65.318 kg

DRUGS (1)
  1. LEVAQUIN [Suspect]
     Dosage: 500MG ONE A DAY FOR 5 DAYS
     Dates: start: 20091117

REACTIONS (5)
  - BACK PAIN [None]
  - HEADACHE [None]
  - MOVEMENT DISORDER [None]
  - NECK PAIN [None]
  - PAIN IN EXTREMITY [None]
